FAERS Safety Report 4698191-0 (Version None)
Quarter: 2005Q2

REPORT INFORMATION
  Report Type: 
  Country: None (occurrence: None)
  Receive Date: 20050621
  Receipt Date: 20050608
  Transmission Date: 20051028
  Serious: Yes (Hospitalization, Other)
  Sender: FDA-Public Use
  Company Number: 2005087223

PATIENT
  Age: 58 Year
  Sex: Male
  Weight: 89.8122 kg

DRUGS (2)
  1. VIAGRA [Suspect]
     Indication: ERECTILE DYSFUNCTION
     Dosage: (50 MG, PRN), ORAL
     Route: 048
     Dates: start: 20040101
  2. ZIAC [Concomitant]

REACTIONS (4)
  - BASEDOW'S DISEASE [None]
  - DRUG INEFFECTIVE [None]
  - HEADACHE [None]
  - PROSTATE CANCER [None]
